FAERS Safety Report 18760425 (Version 1)
Quarter: 2021Q1

REPORT INFORMATION
  Report Type: Spontaneous
  Country: JP (occurrence: JP)
  Receive Date: 20210120
  Receipt Date: 20210120
  Transmission Date: 20210419
  Serious: No
  Sender: FDA-Public Use
  Company Number: JP-TOLMAR, INC.-21JP024948

PATIENT
  Age: 63 Year
  Sex: Female

DRUGS (2)
  1. CLOBETASOL PROPIONATE. [Suspect]
     Active Substance: CLOBETASOL PROPIONATE
     Indication: ALOPECIA AREATA
     Dosage: 10 GRAM; EVERY 2 WEEKS
     Route: 065
  2. CLOBETASOL PROPIONATE. [Suspect]
     Active Substance: CLOBETASOL PROPIONATE
     Dosage: 10 GRAM, Q 1 MONTH
     Route: 065

REACTIONS (2)
  - Alopecia [Unknown]
  - Intraocular pressure increased [Recovered/Resolved]
